FAERS Safety Report 6517830-2 (Version None)
Quarter: 2009Q4

REPORT INFORMATION
  Report Type: 
  Country: None (occurrence: None)
  Receive Date: 20091224
  Receipt Date: 20091214
  Transmission Date: 20100525
  Serious: Yes (Hospitalization)
  Sender: FDA-Public Use
  Company Number: PHHY2009NL55080

PATIENT
  Sex: Female

DRUGS (2)
  1. ZOMETA [Suspect]
     Dosage: UNK
     Route: 042
     Dates: start: 20091027
  2. ZOMETA [Suspect]
     Dosage: UNK
     Dates: start: 20091124

REACTIONS (2)
  - FALL [None]
  - SPINAL FRACTURE [None]
